FAERS Safety Report 10879295 (Version 1)
Quarter: 2015Q1

REPORT INFORMATION
  Report Type: Spontaneous
  Country: CH (occurrence: CH)
  Receive Date: 20150302
  Receipt Date: 20150302
  Transmission Date: 20150721
  Serious: Yes (Life-Threatening, Hospitalization, Other)
  Sender: FDA-Public Use
  Company Number: CH-GLAXOSMITHKLINE-CH2015024488

PATIENT
  Age: 68 Year
  Sex: Female
  Weight: 46 kg

DRUGS (2)
  1. LISITRIL [Concomitant]
     Active Substance: LISINOPRIL
     Indication: HYPERTENSION
     Route: 048
  2. VOTRIENT [Suspect]
     Active Substance: PAZOPANIB HYDROCHLORIDE
     Indication: RENAL CELL CARCINOMA
     Route: 048
     Dates: start: 20140805, end: 20141208

REACTIONS (4)
  - Hypertensive crisis [Recovered/Resolved]
  - Diarrhoea [Recovered/Resolved]
  - Hypertension [Not Recovered/Not Resolved]
  - Stomatitis [Recovered/Resolved]

NARRATIVE: CASE EVENT DATE: 2014
